FAERS Safety Report 8924276 (Version 1)
Quarter: 2012Q4

REPORT INFORMATION
  Report Type: 
  Country: FR (occurrence: FR)
  Receive Date: 20121126
  Receipt Date: 20121126
  Transmission Date: 20130627
  Serious: Yes (Hospitalization)
  Sender: FDA-Public Use
  Company Number: FR-GLAXOSMITHKLINE-B0837324A

PATIENT
  Age: 51 Year
  Sex: Female
  Weight: 65 kg

DRUGS (2)
  1. LAMICTAL [Suspect]
     Indication: BIPOLAR DISORDER
     Dosage: 100MG Per day
     Route: 048
     Dates: start: 20060411
  2. QUETIAPINE [Concomitant]
     Indication: BIPOLAR DISORDER
     Dosage: 30MG Per day
     Route: 048
     Dates: start: 20120627

REACTIONS (2)
  - Oral discomfort [Recovering/Resolving]
  - Dysgeusia [Recovering/Resolving]
